FAERS Safety Report 12988263 (Version 2)
Quarter: 2017Q4

REPORT INFORMATION
  Report Type: Spontaneous
  Country: DE (occurrence: DE)
  Receive Date: 20161130
  Receipt Date: 20171109
  Transmission Date: 20180320
  Serious: Yes (Other)
  Sender: FDA-Public Use
  Company Number: DE-APOPHARMA USA, INC.-2016AP015208

PATIENT
  Age: 66 Year
  Sex: Female

DRUGS (4)
  1. ALKERAN [Suspect]
     Active Substance: MELPHALAN
     Indication: METASTASES TO LIVER
     Dosage: 3 MG/KG, OTHER
     Route: 013
     Dates: start: 201002
  2. ALKERAN [Suspect]
     Active Substance: MELPHALAN
     Dosage: UNK UNK, OTHER
     Route: 036
     Dates: start: 201004
  3. ALKERAN [Suspect]
     Active Substance: MELPHALAN
     Dosage: UNK UNK, OTHER
     Route: 036
     Dates: start: 201007
  4. ALKERAN [Suspect]
     Active Substance: MELPHALAN
     Dosage: UNK UNK, OTHER
     Route: 036
     Dates: start: 201005

REACTIONS (2)
  - Thrombocytopenia [Recovered/Resolved]
  - Neutropenia [Recovered/Resolved]
